FAERS Safety Report 5736200-8 (Version None)
Quarter: 2008Q2

REPORT INFORMATION
  Report Type: 
  Country: None (occurrence: None)
  Receive Date: 20080509
  Receipt Date: 20080509
  Transmission Date: 20081010
  Serious: Yes (Other)
  Sender: FDA-Public Use
  Company Number: None

PATIENT

DRUGS (1)
  1. DIGOXEN }125MG BERTEK [Suspect]
     Indication: ATRIAL FIBRILLATION
     Dosage: .125MG 1 PER DAY PO
     Route: 048
     Dates: start: 20061218, end: 20080401

REACTIONS (8)
  - ARRHYTHMIA [None]
  - ASTHENIA [None]
  - ATRIAL FLUTTER [None]
  - HEADACHE [None]
  - HEART RATE DECREASED [None]
  - HEART RATE INCREASED [None]
  - NAUSEA [None]
  - PHARMACEUTICAL PRODUCT COMPLAINT [None]
